FAERS Safety Report 5691906-4 (Version None)
Quarter: 2008Q1

REPORT INFORMATION
  Report Type: 
  Country: None (occurrence: None)
  Receive Date: 20080331
  Receipt Date: 20080327
  Transmission Date: 20080703
  Serious: Yes (Death, Hospitalization)
  Sender: FDA-Public Use
  Company Number: CERZ-1000147

PATIENT
  Age: 2 Year
  Sex: Female
  Weight: 6.7 kg

DRUGS (1)
  1. CEREZYME [Suspect]
     Indication: GAUCHER'S DISEASE
     Dosage: 600 U, Q2W, INTRAVENOUS
     Route: 042
     Dates: start: 20060830

REACTIONS (4)
  - DISSEMINATED INTRAVASCULAR COAGULATION [None]
  - MYOCLONIC EPILEPSY [None]
  - PNEUMONIA ASPIRATION [None]
  - SEPSIS [None]
